FAERS Safety Report 9282649 (Version 1)
Quarter: 2013Q2

REPORT INFORMATION
  Report Type: Spontaneous
  Country: US (occurrence: US)
  Receive Date: 20130510
  Receipt Date: 20130510
  Transmission Date: 20140414
  Serious: Yes (Other)
  Sender: FDA-Public Use
  Company Number: US-PFIZER INC-2013140114

PATIENT
  Age: 57 Year
  Sex: Female

DRUGS (7)
  1. XELJANZ [Suspect]
     Indication: PSORIATIC ARTHROPATHY
     Dosage: TAKE 1 TABLET (5MG) BY MOUTH TWICE A DAY
     Route: 048
  2. SUDAFED PE [Concomitant]
     Dosage: 10 MG, UNK
  3. METHOTREXATE [Concomitant]
     Dosage: 2.5 MG, UNK
  4. TOPAMAX [Concomitant]
     Dosage: 100 MG, UNK
  5. FOLIC ACID [Concomitant]
     Dosage: UNK
  6. BOTOX [Concomitant]
     Dosage: 100 IU, UNK
  7. LYSINE [Concomitant]
     Dosage: 500 MG, UNK

REACTIONS (3)
  - Rib fracture [Unknown]
  - Abasia [Unknown]
  - Road traffic accident [Unknown]
